FAERS Safety Report 15535952 (Version 1)
Quarter: 2018Q4

REPORT INFORMATION
  Report Type: Spontaneous
  Country: US (occurrence: US)
  Receive Date: 20181022
  Receipt Date: 20181022
  Transmission Date: 20190205
  Serious: Yes (Death, Other)
  Sender: FDA-Public Use
  Company Number: US-ASTELLAS-2018US044967

PATIENT
  Age: 47 Year
  Sex: Male

DRUGS (1)
  1. AMBISOME [Suspect]
     Active Substance: AMPHOTERICIN B
     Indication: GASTROINTESTINAL FUNGAL INFECTION
     Dosage: UNK, UNKNOWN FREQ.
     Route: 042

REACTIONS (1)
  - Drug ineffective [Fatal]
